FAERS Safety Report 22587807 (Version 2)
Quarter: 2023Q2

REPORT INFORMATION
  Report Type: Spontaneous
  Country: US (occurrence: US)
  Receive Date: 20230612
  Receipt Date: 20230620
  Transmission Date: 20230721
  Serious: No
  Sender: FDA-Public Use
  Company Number: US-ABBVIE-5284222

PATIENT
  Age: 83 Year
  Sex: Female

DRUGS (3)
  1. ALPHAGAN P [Suspect]
     Active Substance: BRIMONIDINE TARTRATE
     Indication: Intraocular pressure increased
     Route: 047
  2. ALPHAGAN P [Suspect]
     Active Substance: BRIMONIDINE TARTRATE
     Indication: Glaucoma
  3. BRIMONIDINE [Suspect]
     Active Substance: BRIMONIDINE TARTRATE

REACTIONS (6)
  - Dry eye [Unknown]
  - Eyelid margin crusting [Unknown]
  - Vision blurred [Unknown]
  - Blepharospasm [Unknown]
  - Micturition frequency decreased [Unknown]
  - Dry throat [Unknown]

NARRATIVE: CASE EVENT DATE: 20230501
